FAERS Safety Report 7044311-2 (Version None)
Quarter: 2010Q4

REPORT INFORMATION
  Report Type: 
  Country: None (occurrence: None)
  Receive Date: 20101014
  Receipt Date: 20101007
  Transmission Date: 20110411
  Serious: No
  Sender: FDA-Public Use
  Company Number: US-BIOGENIDEC-2010BI035145

PATIENT
  Age: 38 Year
  Sex: Female

DRUGS (2)
  1. TYSABRI [Suspect]
     Indication: MULTIPLE SCLEROSIS
     Route: 042
     Dates: start: 20090911
  2. PROZAC [Concomitant]
     Indication: STRESS

REACTIONS (12)
  - CHEST DISCOMFORT [None]
  - CONCUSSION [None]
  - CYSTITIS [None]
  - DIZZINESS [None]
  - HEAD INJURY [None]
  - HYPERHIDROSIS [None]
  - RASH PAPULAR [None]
  - SKIN HAEMORRHAGE [None]
  - SKIN LACERATION [None]
  - TACHYCARDIA [None]
  - TEMPERATURE INTOLERANCE [None]
  - VULVOVAGINAL MYCOTIC INFECTION [None]
